FAERS Safety Report 4463866-5 (Version None)
Quarter: 2004Q3

REPORT INFORMATION
  Report Type: 
  Country: None (occurrence: None)
  Receive Date: 20040929
  Receipt Date: 20040914
  Transmission Date: 20050211
  Serious: Yes (Life-Threatening, Hospitalization)
  Sender: FDA-Public Use
  Company Number: 2004230343JP

PATIENT
  Age: 52 Year
  Sex: Male

DRUGS (5)
  1. HALCION [Suspect]
     Dosage: 0.25 + 3.5 MG/DAY, ORAL
     Route: 048
     Dates: start: 20040824, end: 20040824
  2. HALCION [Suspect]
     Dosage: 0.25 + 3.5 MG/DAY, ORAL
     Route: 048
     Dates: start: 20030806
  3. DEPAS(ETIZOLAM) [Suspect]
     Dosage: 3 + 70 MG/DAY, ORAL
     Route: 048
     Dates: start: 20040824, end: 20040824
  4. DEPAS(ETIZOLAM) [Suspect]
     Dosage: 3 + 70 MG/DAY, ORAL
     Route: 048
     Dates: start: 20030806
  5. SOLITA T [Concomitant]

REACTIONS (12)
  - BLOOD PRESSURE ABNORMAL [None]
  - CORNEAL REFLEX DECREASED [None]
  - DEPRESSED LEVEL OF CONSCIOUSNESS [None]
  - DRUG TOXICITY [None]
  - HEART RATE INCREASED [None]
  - HYPOTONIA [None]
  - MULTIPLE DRUG OVERDOSE INTENTIONAL [None]
  - OCULOCEPHALOGYRIC REFLEX ABSENT [None]
  - PO2 DECREASED [None]
  - SNORING [None]
  - SOMNOLENCE [None]
  - SUICIDE ATTEMPT [None]
